FAERS Safety Report 19717639 (Version 1)
Quarter: 2021Q3

REPORT INFORMATION
  Report Type: Spontaneous
  Country: GB (occurrence: GB)
  Receive Date: 20210819
  Receipt Date: 20210819
  Transmission Date: 20211014
  Serious: Yes (Life-Threatening)
  Sender: FDA-Public Use
  Company Number: GB-APOTEX-2021AP035796

PATIENT
  Sex: Female

DRUGS (1)
  1. SEROXAT [Suspect]
     Active Substance: PAROXETINE HYDROCHLORIDE
     Indication: PRODUCT USED FOR UNKNOWN INDICATION
     Dosage: UNK
     Route: 064

REACTIONS (6)
  - Atrial septal defect [Unknown]
  - Foetal exposure during pregnancy [Unknown]
  - Psychological trauma [Unknown]
  - Cardiac operation [Unknown]
  - Anxiety [Unknown]
  - Scar [Unknown]
